FAERS Safety Report 23639101 (Version 2)
Quarter: 2024Q1

REPORT INFORMATION
  Report Type: Spontaneous
  Country: DE (occurrence: DE)
  Receive Date: 20240315
  Receipt Date: 20240327
  Transmission Date: 20240410
  Serious: Yes (Hospitalization, Other)
  Sender: FDA-Public Use
  Company Number: DE-DR. FALK PHARMA GMBH-SA-073-24

PATIENT
  Age: 28 Year
  Sex: Male
  Weight: 75 kg

DRUGS (4)
  1. MESALAMINE [Suspect]
     Active Substance: MESALAMINE
     Indication: Proctitis ulcerative
     Dosage: TIME INTERVAL: 0.33333333 DAYS: DOSE: 1500 MG
     Route: 065
     Dates: start: 202309, end: 20240101
  2. MESALAMINE [Suspect]
     Active Substance: MESALAMINE
     Indication: Proctitis ulcerative
     Dosage: DOSE: 1000 MILLIGRAM?STOP DATE: 2024
     Route: 065
     Dates: start: 20240304
  3. MESALAMINE [Suspect]
     Active Substance: MESALAMINE
     Indication: Proctitis ulcerative
     Dosage: DOSE: 1000 MG
     Route: 065
     Dates: start: 202305, end: 202308
  4. MESALAMINE [Suspect]
     Active Substance: MESALAMINE
     Indication: Proctitis ulcerative
     Dosage: TIME INTERVAL: 0.33333333 DAYS: DOSE: 1500 MG
     Route: 065
     Dates: start: 20230327, end: 202304

REACTIONS (4)
  - Bile duct stenosis [Unknown]
  - Pancreatitis acute [Unknown]
  - Underdose [Recovered/Resolved]
  - Cholecystitis [Unknown]

NARRATIVE: CASE EVENT DATE: 20230501
